FAERS Safety Report 25653500 (Version 2)
Quarter: 2025Q4

REPORT INFORMATION
  Report Type: Spontaneous
  Country: JP (occurrence: JP)
  Receive Date: 20250807
  Receipt Date: 20251003
  Transmission Date: 20260117
  Serious: Yes (Hospitalization, Other)
  Sender: ALEXION PHARMACEUTICALS
  Company Number: JP-ASTRAZENECA-202507JPN025372JP

PATIENT
  Age: 90 Year
  Sex: Male

DRUGS (7)
  1. DAPAGLIFLOZIN [Suspect]
     Active Substance: DAPAGLIFLOZIN
     Indication: Cardiac failure chronic
  2. ISOSORBIDE MONONITRATE [Concomitant]
     Active Substance: ISOSORBIDE MONONITRATE
  3. CANDESARTAN [Concomitant]
     Active Substance: CANDESARTAN
  4. AMLODIPINE [Concomitant]
     Active Substance: AMLODIPINE BESYLATE
  5. DUTASTERIDE [Concomitant]
     Active Substance: DUTASTERIDE
  6. FEBUXOSTAT [Concomitant]
     Active Substance: FEBUXOSTAT
  7. VIBEGRON [Concomitant]
     Active Substance: VIBEGRON

REACTIONS (4)
  - Hyperkalaemia [Recovered/Resolved]
  - Hypermagnesaemia [Recovered/Resolved]
  - Blood creatinine increased [Unknown]
  - Glomerular filtration rate decreased [Unknown]

NARRATIVE: CASE EVENT DATE: 20250704
